FAERS Safety Report 5225581-X (Version None)
Quarter: 2007Q1

REPORT INFORMATION
  Report Type: 
  Country: None (occurrence: None)
  Receive Date: 20070131
  Receipt Date: 20070122
  Transmission Date: 20070707
  Serious: Yes (Other)
  Sender: FDA-Public Use
  Company Number: JP-PFIZER INC-2007007266

PATIENT
  Age: 35 Year
  Sex: Female

DRUGS (1)
  1. ZYRTEC [Suspect]
     Indication: DERMATITIS ATOPIC
     Dosage: TEXT:1 DF
     Route: 048

REACTIONS (1)
  - LOSS OF CONSCIOUSNESS [None]
